FAERS Safety Report 7535773-2 (Version None)
Quarter: 2011Q2

REPORT INFORMATION
  Report Type: 
  Country: None (occurrence: None)
  Receive Date: 20110609
  Receipt Date: 20110311
  Transmission Date: 20111010
  Serious: No
  Sender: FDA-Public Use
  Company Number: US-KINGPHARMUSA00001-K201100257

PATIENT
  Age: 50 Year
  Sex: Female
  Weight: 89.796 kg

DRUGS (4)
  1. NEXIUM [Concomitant]
  2. PERCOCET [Concomitant]
     Indication: BREAKTHROUGH PAIN
  3. EMBEDA [Suspect]
     Indication: BACK PAIN
     Dosage: 50 MG, BID
     Route: 048
     Dates: start: 20100101
  4. ANTIHYPERTENSIVES [Concomitant]
     Indication: HYPERTENSION

REACTIONS (1)
  - PRURITUS [None]
